FAERS Safety Report 12239226 (Version 1)
Quarter: 2016Q2

REPORT INFORMATION
  Report Type: Spontaneous
  Country: PH (occurrence: PH)
  Receive Date: 20160405
  Receipt Date: 20160405
  Transmission Date: 20160815
  Serious: Yes (Death)
  Sender: FDA-Public Use
  Company Number: PH-009507513-1603PHL013078

PATIENT
  Age: 65 Year
  Sex: Female

DRUGS (1)
  1. JANUMET [Suspect]
     Active Substance: METFORMIN HYDROCHLORIDE\SITAGLIPTIN PHOSPHATE
     Indication: DIABETES MELLITUS
     Dosage: ONE TABLET, ONCE A DAY
     Route: 048

REACTIONS (3)
  - Diabetic complication [Fatal]
  - Dialysis [Unknown]
  - Inappropriate schedule of drug administration [Unknown]
